FAERS Safety Report 12374223 (Version 1)
Quarter: 2016Q2

REPORT INFORMATION
  Report Type: Spontaneous
  Country: US (occurrence: None)
  Receive Date: 20160516
  Receipt Date: 20160516
  Transmission Date: 20160815
  Serious: Yes (Other)
  Sender: FDA-Public Use
  Company Number: None

PATIENT
  Age: 45 Year
  Sex: Female
  Weight: 67.13 kg

DRUGS (2)
  1. MINIVELLE ESTROGEN PATCH [Concomitant]
  2. ASPERCREME NOS [Suspect]
     Active Substance: MENTHOL\TROLAMINE SALICYLATE
     Indication: NECK PAIN
     Dosage: APPLIED TO A SURFACE, USUALLY THE SKIN
     Route: 061
     Dates: start: 20160509, end: 20160509

REACTIONS (5)
  - Chemical injury [None]
  - Skin discolouration [None]
  - Scab [None]
  - Pain [None]
  - Blister [None]

NARRATIVE: CASE EVENT DATE: 20160509
